FAERS Safety Report 10175016 (Version 3)
Quarter: 2014Q2

REPORT INFORMATION
  Report Type: Spontaneous
  Country: FR (occurrence: FR)
  Receive Date: 20140515
  Receipt Date: 20140529
  Transmission Date: 20141212
  Serious: Yes (Life-Threatening, Hospitalization, Other)
  Sender: FDA-Public Use
  Company Number: PHHY2014FR058249

PATIENT
  Age: 34 Year
  Sex: Female
  Weight: 55 kg

DRUGS (1)
  1. GILENYA [Suspect]
     Indication: MULTIPLE SCLEROSIS
     Dosage: 0.5 MG, QD
     Route: 048
     Dates: start: 20130625, end: 201402

REACTIONS (7)
  - Splenic rupture [Recovered/Resolved with Sequelae]
  - Intra-abdominal haemorrhage [Unknown]
  - Abdominal pain [Unknown]
  - Peritoneal haemorrhage [Unknown]
  - Anaemia [Unknown]
  - Haemoglobin decreased [Unknown]
  - Lymphopenia [Unknown]
